FAERS Safety Report 19351371 (Version 3)
Quarter: 2021Q4

REPORT INFORMATION
  Report Type: Report from Study
  Country: CO (occurrence: CO)
  Receive Date: 20210531
  Receipt Date: 20211013
  Transmission Date: 20220303
  Serious: Yes (Hospitalization)
  Sender: FDA-Public Use
  Company Number: CO-JNJFOC-20210553747

PATIENT
  Age: 49 Year
  Sex: Female
  Weight: 75 kg

DRUGS (7)
  1. SIMPONI [Suspect]
     Active Substance: GOLIMUMAB
     Indication: Ankylosing spondylitis
     Route: 058
     Dates: start: 20181108
  2. SULFASALAZINE [Concomitant]
     Active Substance: SULFASALAZINE
  3. CALCITRIOL [Concomitant]
     Active Substance: CALCITRIOL
  4. ACETAMINOPHEN [Concomitant]
     Active Substance: ACETAMINOPHEN
  5. NAPROXEN [Concomitant]
     Active Substance: NAPROXEN
  6. BIOTIN [Concomitant]
     Active Substance: BIOTIN
  7. METHOTREXATE [Concomitant]
     Active Substance: METHOTREXATE

REACTIONS (2)
  - COVID-19 [Recovering/Resolving]
  - Mobility decreased [Recovering/Resolving]

NARRATIVE: CASE EVENT DATE: 20210501
